FAERS Safety Report 19265194 (Version 1)
Quarter: 2021Q2

REPORT INFORMATION
  Report Type: Spontaneous
  Country: US (occurrence: US)
  Receive Date: 20210517
  Receipt Date: 20210517
  Transmission Date: 20210717
  Serious: Yes (Death)
  Sender: FDA-Public Use
  Company Number: US-PFIZER INC-2021503526

PATIENT
  Age: 29 Year
  Sex: Female
  Weight: 32.2 kg

DRUGS (4)
  1. CHLORPHENIRAMINE [CHLORPHENAMINE] [Suspect]
     Active Substance: CHLORPHENIRAMINE
     Dosage: UNK
  2. CAFFEINE. [Concomitant]
     Active Substance: CAFFEINE
     Dosage: UNK
  3. METAXALONE. [Suspect]
     Active Substance: METAXALONE
     Dosage: UNK
  4. CITALOPRAM [Suspect]
     Active Substance: CITALOPRAM HYDROBROMIDE
     Dosage: UNK

REACTIONS (3)
  - Overdose [Fatal]
  - Drug abuse [Fatal]
  - Completed suicide [Fatal]
